FAERS Safety Report 16899350 (Version 12)
Quarter: 2021Q2

REPORT INFORMATION
  Report Type: Spontaneous
  Country: IN (occurrence: IN)
  Receive Date: 20191009
  Receipt Date: 20210615
  Transmission Date: 20210716
  Serious: Yes (Hospitalization, Other)
  Sender: FDA-Public Use
  Company Number: IN-PFIZER INC-2019138322

PATIENT
  Age: 63 Year
  Sex: Male

DRUGS (9)
  1. AB PHYLLINE [Concomitant]
     Dosage: 200 MG, 1X/DAY (IN THE NIGHT AFTER DINNER)
     Route: 048
  2. BROCLEAR [Concomitant]
     Dosage: UNK, 2X/DAY
  3. ULTRANURON PLUS [Concomitant]
     Dosage: UNK, 1X/DAY
     Route: 048
  4. DUOLIN RESPULES [Concomitant]
     Active Substance: LEVALBUTEROL HYDROCHLORIDE
     Dosage: UNK, 2X/DAY
     Route: 055
  5. CRIZALK [Suspect]
     Active Substance: CRIZOTINIB
     Indication: LUNG NEOPLASM MALIGNANT
     Dosage: 250 MG, TWICE DAILY
     Route: 048
     Dates: start: 20180406
  6. XARELTO [Concomitant]
     Active Substance: RIVAROXABAN
     Dosage: 20 MG, 1X/DAY
     Route: 048
  7. BUDESONIDE. [Concomitant]
     Active Substance: BUDESONIDE
     Dosage: UNK, 2X/DAY
     Route: 055
  8. ASCORIL PLUS [Concomitant]
     Dosage: UNK, 3X/DAY
     Route: 048
  9. PANTOPRAZOLE [Concomitant]
     Active Substance: PANTOPRAZOLE
     Dosage: 40 MG, 2X/DAY (BEFORE MEALS)
     Route: 048

REACTIONS (14)
  - Thrombosis [Unknown]
  - Blood creatinine increased [Unknown]
  - Pleural effusion [Unknown]
  - White blood cell count decreased [Recovered/Resolved]
  - Leukocytosis [Recovered/Resolved]
  - Peripheral swelling [Recovered/Resolved]
  - Pericardial effusion [Unknown]
  - Diabetes mellitus [Unknown]
  - Neoplasm progression [Unknown]
  - Electrocardiogram ST segment depression [Unknown]
  - Vitamin D deficiency [Unknown]
  - Dyspnoea [Recovered/Resolved]
  - Electrolyte imbalance [Recovered/Resolved]
  - Haemoglobin decreased [Recovered/Resolved]

NARRATIVE: CASE EVENT DATE: 20180611
